FAERS Safety Report 11888518 (Version 2)
Quarter: 2016Q1

REPORT INFORMATION
  Report Type: Spontaneous
  Country: US (occurrence: US)
  Receive Date: 20160105
  Receipt Date: 20160129
  Transmission Date: 20160526
  Serious: No
  Sender: FDA-Public Use
  Company Number: US-ASTRAZENECA-2015SF29439

PATIENT
  Sex: Male

DRUGS (2)
  1. RHINOCORT [Suspect]
     Active Substance: BUDESONIDE
     Indication: CHRONIC SINUSITIS
     Dosage: 32MCG, 2 SPRAYS IN EACH NOSTRIL, TWO TIMES A DAY
     Route: 045
  2. RHINOCORT [Suspect]
     Active Substance: BUDESONIDE
     Indication: RHINITIS
     Dosage: 32MCG, 2 SPRAYS IN EACH NOSTRIL, TWO TIMES A DAY
     Route: 045

REACTIONS (4)
  - Cough [Unknown]
  - Product quality issue [Unknown]
  - Expired product administered [Unknown]
  - Product use issue [Unknown]
